FAERS Safety Report 15130618 (Version 4)
Quarter: 2018Q3

REPORT INFORMATION
  Report Type: Spontaneous
  Country: DK (occurrence: DK)
  Receive Date: 20180711
  Receipt Date: 20180918
  Transmission Date: 20181010
  Serious: Yes (Life-Threatening, Hospitalization, Disabling)
  Sender: FDA-Public Use
  Company Number: DK-JNJFOC-20180710562

PATIENT
  Age: 68 Year
  Sex: Male

DRUGS (3)
  1. XARELTO [Suspect]
     Active Substance: RIVAROXABAN
     Indication: THROMBOSIS PROPHYLAXIS
     Route: 048
     Dates: start: 201605
  2. CIALIS [Concomitant]
     Active Substance: TADALAFIL
     Indication: ERECTILE DYSFUNCTION
     Route: 048
  3. METOPROLOL TARTRATE. [Concomitant]
     Active Substance: METOPROLOL TARTRATE
     Indication: BLOOD PRESSURE INCREASED
     Route: 048

REACTIONS (25)
  - Speech disorder [Not Recovered/Not Resolved]
  - Wheelchair user [Not Recovered/Not Resolved]
  - Brain injury [Not Recovered/Not Resolved]
  - Dysgraphia [Unknown]
  - Dysarthria [Not Recovered/Not Resolved]
  - Gait inability [Not Recovered/Not Resolved]
  - Memory impairment [Not Recovered/Not Resolved]
  - Cerebral haemorrhage [Not Recovered/Not Resolved]
  - Depressed level of consciousness [Unknown]
  - Hemiparesis [Not Recovered/Not Resolved]
  - Diplopia [Not Recovered/Not Resolved]
  - Musculoskeletal disorder [Not Recovered/Not Resolved]
  - Aphasia [Not Recovered/Not Resolved]
  - Ataxia [Not Recovered/Not Resolved]
  - Cerebral haemorrhage [Unknown]
  - Adverse event [Unknown]
  - Balance disorder [Not Recovered/Not Resolved]
  - Cheyne-Stokes respiration [Recovered/Resolved]
  - Motor dysfunction [Not Recovered/Not Resolved]
  - Cognitive disorder [Not Recovered/Not Resolved]
  - Hemiplegia [Not Recovered/Not Resolved]
  - Walking disability [Not Recovered/Not Resolved]
  - Dizziness [Not Recovered/Not Resolved]
  - Brain operation [Recovered/Resolved]
  - Gait disturbance [Unknown]

NARRATIVE: CASE EVENT DATE: 20160715
